FAERS Safety Report 9897155 (Version 2)
Quarter: 2014Q1

REPORT INFORMATION
  Report Type: Spontaneous
  Country: GR (occurrence: GR)
  Receive Date: 20140214
  Receipt Date: 20140303
  Transmission Date: 20141002
  Serious: Yes (Hospitalization)
  Sender: FDA-Public Use
  Company Number: GR-BRISTOL-MYERS SQUIBB COMPANY-20161592

PATIENT
  Age: 83 Year
  Sex: Female

DRUGS (6)
  1. GLUCOPHAGE TABS 850 MG [Suspect]
     Indication: DIABETES MELLITUS
     Dosage: FILM COATED TABLET
     Route: 048
     Dates: start: 20131113, end: 20131203
  2. INSULIN GLARGINE [Concomitant]
     Indication: DIABETES MELLITUS
  3. SUCRALFATE [Concomitant]
  4. CO-DIOVAN [Concomitant]
  5. INDERAL [Concomitant]
     Dosage: 1DF:40MG HALF DOSAGE 2/D
  6. AUGMENTIN [Concomitant]
     Indication: URINARY TRACT INFECTION

REACTIONS (1)
  - Coma hepatic [Recovered/Resolved]
